FAERS Safety Report 22388131 (Version 1)
Quarter: 2023Q2

REPORT INFORMATION
  Report Type: Spontaneous
  Country: US (occurrence: US)
  Receive Date: 20230531
  Receipt Date: 20230531
  Transmission Date: 20230721
  Serious: No
  Sender: FDA-Public Use
  Company Number: US-SA-SAC20230529000121

PATIENT
  Age: 69 Year
  Sex: Male
  Weight: 79.4 kg

DRUGS (1)
  1. DUPIXENT [Suspect]
     Active Substance: DUPILUMAB
     Indication: Dermatitis
     Dosage: 300 MG, QOW
     Route: 058
     Dates: start: 20220520

REACTIONS (5)
  - Diarrhoea [Unknown]
  - Pruritus [Unknown]
  - Dry skin [Unknown]
  - Therapeutic response unexpected [Unknown]
  - Product use in unapproved indication [Unknown]

NARRATIVE: CASE EVENT DATE: 20220101
